FAERS Safety Report 24047190 (Version 1)
Quarter: 2024Q3

REPORT INFORMATION
  Report Type: Report from Study
  Country: US (occurrence: US)
  Receive Date: 20240703
  Receipt Date: 20240703
  Transmission Date: 20241016
  Serious: Yes (Other)
  Sender: ABBVIE
  Company Number: US-ABBVIE-5821400

PATIENT
  Age: 53 Year
  Sex: Female

DRUGS (1)
  1. HUMIRA [Suspect]
     Active Substance: ADALIMUMAB
     Indication: Crohn^s disease
     Route: 058
     Dates: start: 202211, end: 202312

REACTIONS (9)
  - Gastrointestinal stenosis [Unknown]
  - Crohn^s disease [Unknown]
  - Hernia [Unknown]
  - Drug ineffective [Not Recovered/Not Resolved]
  - Volvulus [Unknown]
  - Unevaluable event [Unknown]
  - Wound [Unknown]
  - Wound secretion [Unknown]
  - Postoperative wound infection [Unknown]

NARRATIVE: CASE EVENT DATE: 20230101
